FAERS Safety Report 6530679-X (Version None)
Quarter: 2010Q1

REPORT INFORMATION
  Report Type: 
  Country: None (occurrence: None)
  Receive Date: 20100108
  Receipt Date: 20081112
  Transmission Date: 20100710
  Serious: No
  Sender: FDA-Public Use
  Company Number: A0757111A

PATIENT
  Age: 57 Year
  Sex: Female

DRUGS (4)
  1. LOVAZA [Suspect]
     Dosage: 1CAP THREE TIMES PER DAY
     Route: 048
     Dates: start: 20081108, end: 20081111
  2. ZESTORETIC [Concomitant]
  3. LIPITOR [Concomitant]
  4. XANAX [Concomitant]

REACTIONS (6)
  - CHILLS [None]
  - DECREASED APPETITE [None]
  - FATIGUE [None]
  - INFLUENZA LIKE ILLNESS [None]
  - OROPHARYNGEAL PAIN [None]
  - PAIN [None]
